FAERS Safety Report 12477191 (Version 2)
Quarter: 2016Q3

REPORT INFORMATION
  Report Type: Spontaneous
  Country: US (occurrence: US)
  Receive Date: 20160617
  Receipt Date: 20160706
  Transmission Date: 20161109
  Serious: Yes (Death, Hospitalization, Other)
  Sender: FDA-Public Use
  Company Number: US-TEVA-668200USA

PATIENT
  Age: 24 Year
  Sex: Female

DRUGS (36)
  1. METOPROLOL. [Suspect]
     Active Substance: METOPROLOL
     Route: 065
     Dates: start: 20131117, end: 20131120
  2. METHYLPREDNISOLONE. [Suspect]
     Active Substance: METHYLPREDNISOLONE
     Dates: start: 20131118, end: 20131120
  3. NITROGLYCERIN SUBLINGUAL [Suspect]
     Active Substance: NITROGLYCERIN
     Route: 060
     Dates: start: 20131117, end: 20131120
  4. LEVOPHED [Suspect]
     Active Substance: NOREPINEPHRINE BITARTRATE
     Route: 065
     Dates: start: 20131117, end: 20131120
  5. ONDANSETRON [Suspect]
     Active Substance: ONDANSETRON
     Dates: start: 20131119, end: 20131119
  6. DILAUDID [Suspect]
     Active Substance: HYDROMORPHONE HYDROCHLORIDE
     Route: 065
     Dates: start: 201311, end: 201311
  7. MIDAZOLAM [Suspect]
     Active Substance: MIDAZOLAM\MIDAZOLAM HYDROCHLORIDE
     Route: 065
     Dates: start: 20131117, end: 20131120
  8. ZOFRAN [Suspect]
     Active Substance: ONDANSETRON HYDROCHLORIDE
     Dates: start: 20131119, end: 20131119
  9. DEXTROSE 5% AND 1/2 NS [Suspect]
     Active Substance: DEXTROSE\SODIUM CHLORIDE
     Route: 065
     Dates: start: 20131118, end: 20131118
  10. PANTOPRAZOLE [Suspect]
     Active Substance: PANTOPRAZOLE SODIUM
     Route: 065
     Dates: start: 20131118, end: 20131118
  11. ZOSYN [Suspect]
     Active Substance: PIPERACILLIN SODIUM\TAZOBACTAM SODIUM
     Route: 065
     Dates: start: 20131118, end: 20131120
  12. BD POSTFLUSH/SODIUM CHLORIDE [Suspect]
     Active Substance: SODIUM CHLORIDE
     Route: 065
     Dates: start: 20131119, end: 20131120
  13. CIPRO [Suspect]
     Active Substance: CIPROFLOXACIN HYDROCHLORIDE
     Route: 065
     Dates: start: 20131117, end: 20131120
  14. NEO-SYNEPHRINE [Suspect]
     Active Substance: PHENYLEPHRINE HYDROCHLORIDE
     Route: 065
     Dates: start: 20131117, end: 20131120
  15. ONDANSETRON [Suspect]
     Active Substance: ONDANSETRON
     Route: 065
     Dates: start: 20131118, end: 20131118
  16. ZOFRAN [Suspect]
     Active Substance: ONDANSETRON HYDROCHLORIDE
     Route: 065
     Dates: start: 20131118, end: 20131118
  17. PIPERACILLIN AND TAZOBACTAM [Suspect]
     Active Substance: PIPERACILLIN SODIUM\TAZOBACTAM SODIUM
     Route: 065
     Dates: start: 20131118, end: 20131120
  18. DIPHENHYDRAMINE. [Suspect]
     Active Substance: DIPHENHYDRAMINE
     Route: 065
     Dates: start: 20131118, end: 20131119
  19. SODIUM BICARBONATE. [Suspect]
     Active Substance: SODIUM BICARBONATE
     Route: 065
     Dates: start: 20131120, end: 20131120
  20. SALINE [Suspect]
     Active Substance: SODIUM CHLORIDE
     Dates: start: 20131117, end: 20131120
  21. SEPTRA [Suspect]
     Active Substance: SULFAMETHOXAZOLE\TRIMETHOPRIM
     Route: 065
     Dates: start: 20131117, end: 20131120
  22. LORAZEPAM. [Suspect]
     Active Substance: LORAZEPAM
     Route: 065
     Dates: start: 20131117, end: 20131120
  23. PANTOPRAZOLE [Suspect]
     Active Substance: PANTOPRAZOLE SODIUM
     Dates: start: 20131119, end: 20131119
  24. HYDROMORPHONE [Suspect]
     Active Substance: HYDROMORPHONE
     Route: 065
     Dates: start: 20131118, end: 20131119
  25. SOLU-MEDROL [Suspect]
     Active Substance: METHYLPREDNISOLONE SODIUM SUCCINATE
     Dates: start: 20131118, end: 20131120
  26. DOBUTAMINE [Suspect]
     Active Substance: DOBUTAMINE\DOBUTAMINE HYDROCHLORIDE
     Route: 065
     Dates: start: 20131117, end: 20131120
  27. DEXTROSE 5% AND 1/2 NS [Suspect]
     Active Substance: DEXTROSE\SODIUM CHLORIDE
     Dates: start: 20131119, end: 20131119
  28. PROTONIX [Suspect]
     Active Substance: PANTOPRAZOLE SODIUM
     Route: 065
     Dates: start: 20131118, end: 20131118
  29. PROTONIX [Suspect]
     Active Substance: PANTOPRAZOLE SODIUM
     Dates: start: 20131119, end: 20131119
  30. BENADRYL [Suspect]
     Active Substance: DIPHENHYDRAMINE HYDROCHLORIDE
     Route: 065
     Dates: start: 20131118, end: 20131119
  31. MAGNESIUM SULFATE. [Suspect]
     Active Substance: MAGNESIUM SULFATE
     Route: 065
     Dates: start: 20131118, end: 20131118
  32. CEFTRIAXONE. [Suspect]
     Active Substance: CEFTRIAXONE
     Route: 065
     Dates: start: 20131117, end: 20131120
  33. VANCOMYCIN [Suspect]
     Active Substance: VANCOMYCIN
     Route: 065
     Dates: start: 20131117, end: 20131120
  34. MORPHINE [Suspect]
     Active Substance: MORPHINE
     Route: 065
     Dates: start: 20131117, end: 20131120
  35. METRONIDAZOLE. [Suspect]
     Active Substance: METRONIDAZOLE
     Route: 065
     Dates: start: 20131117, end: 20131120
  36. DOPAMINE [Suspect]
     Active Substance: DOPAMINE\DOPAMINE HYDROCHLORIDE
     Route: 065
     Dates: start: 20131117, end: 20131120

REACTIONS (3)
  - Pulmonary vascular disorder [Unknown]
  - Product contamination physical [Unknown]
  - Respiratory disorder [Fatal]
